FAERS Safety Report 7348010-9 (Version None)
Quarter: 2011Q1

REPORT INFORMATION
  Report Type: 
  Country: None (occurrence: None)
  Receive Date: 20110302
  Receipt Date: 20110215
  Transmission Date: 20110831
  Serious: Yes (Hospitalization)
  Sender: FDA-Public Use
  Company Number: 010995

PATIENT
  Sex: Female
  Weight: 57.1 kg

DRUGS (16)
  1. CERTOLIZUMAB PEGOL (CERTOLIZUMAB PEGOL) [Suspect]
     Indication: RHEUMATOID ARTHRITIS
     Dosage: 200 MG, 1X/2 WEEKS, SUBCUTANEOUS, 200MG 1X/2 WEEKS, SUBCUTAENOUS, SUBCUTANEOUS
     Route: 058
     Dates: start: 20090820, end: 20100415
  2. CERTOLIZUMAB PEGOL (CERTOLIZUMAB PEGOL) [Suspect]
     Indication: RHEUMATOID ARTHRITIS
     Dosage: 200 MG, 1X/2 WEEKS, SUBCUTANEOUS, 200MG 1X/2 WEEKS, SUBCUTAENOUS, SUBCUTANEOUS
     Route: 058
     Dates: start: 20110120
  3. CERTOLIZUMAB PEGOL (CERTOLIZUMAB PEGOL) [Suspect]
     Indication: RHEUMATOID ARTHRITIS
     Dosage: 200 MG, 1X/2 WEEKS, SUBCUTANEOUS, 200MG 1X/2 WEEKS, SUBCUTAENOUS, SUBCUTANEOUS
     Route: 058
     Dates: start: 20100526, end: 20101125
  4. ISONIAZID [Concomitant]
  5. TAUROURSODESOXYCHOLIC ACID [Concomitant]
  6. VOLTAREN [Suspect]
     Indication: RHEUMATOID ARTHRITIS
     Dosage: ADEQUATE DOSE, AS NEEDED TRANSDERMAL, ADEQUATE DOSE TRANSDERMAL
     Route: 062
     Dates: start: 20100526
  7. VOLTAREN [Suspect]
     Indication: RHEUMATOID ARTHRITIS
     Dosage: ADEQUATE DOSE, AS NEEDED TRANSDERMAL, ADEQUATE DOSE TRANSDERMAL
     Route: 062
     Dates: start: 20090528
  8. TEPRENONE [Concomitant]
  9. ROXATIDINE ACETATE HCL [Concomitant]
  10. PYRIDOXAL PHOSPHATE [Concomitant]
  11. AMLODIPINE BESYLATE [Concomitant]
  12. RABEPRAZOLE SODIUM [Concomitant]
  13. TRIAZOLAM [Concomitant]
  14. DICLOFENAC SODIUM [Concomitant]
  15. PREDNISOLONE [Suspect]
     Indication: RHEUMATOID ARTHRITIS
     Dosage: 2 MG ORAL, 2 MG ORAL
     Route: 048
     Dates: start: 20100527
  16. PREDNISOLONE [Suspect]
     Indication: RHEUMATOID ARTHRITIS
     Dosage: 2 MG ORAL, 2 MG ORAL
     Route: 048
     Dates: start: 20090331, end: 20100416

REACTIONS (7)
  - BLOOD PRESSURE SYSTOLIC INCREASED [None]
  - ARTHROPATHY [None]
  - SUBARACHNOID HAEMORRHAGE [None]
  - BLOOD PRESSURE DIASTOLIC DECREASED [None]
  - ACTIVATED PARTIAL THROMBOPLASTIN TIME PROLONGED [None]
  - RUPTURED CEREBRAL ANEURYSM [None]
  - PROTHROMBIN TIME SHORTENED [None]
